FAERS Safety Report 16373000 (Version 1)
Quarter: 2019Q2

REPORT INFORMATION
  Report Type: Spontaneous
  Country: US (occurrence: US)
  Receive Date: 20190530
  Receipt Date: 20190530
  Transmission Date: 20190711
  Serious: Yes (Other)
  Sender: FDA-Public Use
  Company Number: US-TEVA-2019-US-1055680

PATIENT
  Age: 82 Year
  Sex: Male

DRUGS (3)
  1. AZACITIDINE. [Suspect]
     Active Substance: AZACITIDINE
     Indication: MYELODYSPLASTIC SYNDROME
  2. AZACITIDINE. [Suspect]
     Active Substance: AZACITIDINE
     Indication: ESSENTIAL THROMBOCYTHAEMIA
     Dosage: FOR 7 DAYS; RECEIVED TWO CYCLES
     Route: 065
  3. AZACITIDINE. [Suspect]
     Active Substance: AZACITIDINE
     Indication: MYELODYSPLASTIC SYNDROME
     Dosage: RE-INITIATED
     Route: 065

REACTIONS (3)
  - Febrile neutropenia [Unknown]
  - Enterovirus infection [Unknown]
  - Rhinovirus infection [Unknown]
